FAERS Safety Report 21393497 (Version 1)
Quarter: 2022Q3

REPORT INFORMATION
  Report Type: Spontaneous
  Country: US (occurrence: None)
  Receive Date: 20220928
  Receipt Date: 20220928
  Transmission Date: 20221027
  Serious: No
  Sender: FDA-Public Use
  Company Number: None

PATIENT
  Sex: Female

DRUGS (1)
  1. CAPECITABINE [Suspect]
     Active Substance: CAPECITABINE
     Dosage: FREQUENCY : TWICE A DAY;  7 DAYS ON AND 7 DAYS OFF?
     Route: 048

REACTIONS (9)
  - Dry skin [None]
  - Insomnia [None]
  - Fatigue [None]
  - Insulin resistant diabetes [None]
  - Weight increased [None]
  - Appetite disorder [None]
  - Gallbladder disorder [None]
  - Loss of consciousness [None]
  - Iron deficiency [None]
